FAERS Safety Report 7172211-6 (Version None)
Quarter: 2010Q4

REPORT INFORMATION
  Report Type: 
  Country: None (occurrence: None)
  Receive Date: 20101217
  Receipt Date: 20100202
  Transmission Date: 20110411
  Serious: No
  Sender: FDA-Public Use
  Company Number: US-AMGEN-KDL390229

PATIENT

DRUGS (19)
  1. ENBREL [Suspect]
     Indication: PRODUCT USED FOR UNKNOWN INDICATION
     Dosage: 50 MG, QWK
     Route: 058
  2. ALENDRONATE SODIUM [Concomitant]
     Dosage: 35 MG, UNK
     Route: 048
  3. PANTOPRAZOLE SODIUM [Concomitant]
     Dosage: 40 MG, UNK
     Route: 048
  4. AMLODIPINE BESYLATE [Concomitant]
     Dosage: 5 MG, UNK
     Route: 048
  5. PREGABALIN [Concomitant]
     Dosage: 150 MG, UNK
     Route: 048
  6. LEVOTHYROXINE SODIUM [Concomitant]
     Dosage: 175 A?G, UNK
     Route: 048
  7. TRAZODONE HCL [Concomitant]
     Dosage: 100 MG, UNK
     Route: 048
  8. FOLIC ACID [Concomitant]
     Dosage: 1 MG, UNK
     Route: 048
  9. HYDROCORTISONE [Concomitant]
     Dosage: 20 MG, UNK
     Route: 048
  10. POTASSIUM CHLORIDE [Concomitant]
     Dosage: 20 MEQ, UNK
     Route: 048
  11. FLUOXETINE HYDROCHLORIDE [Concomitant]
     Dosage: 20 MG, UNK
     Route: 048
  12. VITAMIN B COMPLEX [Concomitant]
     Dosage: UNK UNK, UNK
     Route: 048
  13. OXYCODONE HYDROCHLORIDE [Concomitant]
     Dosage: 20 MG, UNK
     Route: 048
  14. ERGOCALCIFEROL [Concomitant]
     Dosage: 1000 IU, UNK
     Route: 048
  15. SENNA [Concomitant]
     Dosage: 8.6 MG, UNK
     Route: 048
  16. LIDODERM [Concomitant]
     Dosage: 5 %, UNK
  17. METHOTREXATE [Concomitant]
     Dosage: 50 MG, UNK
  18. MILNACIPRAN [Concomitant]
     Dosage: 100 MG, UNK
     Route: 048
  19. OXYCODONE [Concomitant]
     Dosage: 5 MG, UNK
     Route: 048

REACTIONS (3)
  - INJECTION SITE HAEMATOMA [None]
  - INJECTION SITE PAIN [None]
  - INJECTION SITE SWELLING [None]
